FAERS Safety Report 5430741-9 (Version None)
Quarter: 2007Q3

REPORT INFORMATION
  Report Type: 
  Country: None (occurrence: None)
  Receive Date: 20070830
  Receipt Date: 20061107
  Transmission Date: 20080115
  Serious: No
  Sender: FDA-Public Use
  Company Number: A0626559A

PATIENT
  Sex: Female

DRUGS (5)
  1. WELLBUTRIN XL [Suspect]
     Indication: DEPRESSION
     Dosage: 650MG PER DAY
     Route: 048
     Dates: start: 20061024
  2. CYMBALTA [Concomitant]
  3. ESTRATEST [Concomitant]
  4. ACTOS [Concomitant]
  5. METFORMIN HCL [Concomitant]

REACTIONS (8)
  - BRUXISM [None]
  - IRRITABILITY [None]
  - LOGORRHOEA [None]
  - NAUSEA [None]
  - NERVOUSNESS [None]
  - OVERDOSE [None]
  - THINKING ABNORMAL [None]
  - WEIGHT DECREASED [None]
